FAERS Safety Report 17312588 (Version 2)
Quarter: 2021Q1

REPORT INFORMATION
  Report Type: Spontaneous
  Country: US (occurrence: US)
  Receive Date: 20200123
  Receipt Date: 20210302
  Transmission Date: 20210419
  Serious: Yes (Hospitalization, Other)
  Sender: FDA-Public Use
  Company Number: US-ASTRAZENECA-2020SE08796

PATIENT
  Age: 23632 Day
  Sex: Female
  Weight: 79.4 kg

DRUGS (71)
  1. PRILOSEC [Suspect]
     Active Substance: OMEPRAZOLE MAGNESIUM
     Indication: GASTROOESOPHAGEAL REFLUX DISEASE
     Route: 065
     Dates: start: 2016, end: 2018
  2. LASIX [Concomitant]
     Active Substance: FUROSEMIDE
     Indication: ANTIBIOTIC THERAPY
     Dates: start: 2013
  3. PENN [Concomitant]
     Indication: ANTIBIOTIC THERAPY
     Dates: start: 2011
  4. TYLENOL [Concomitant]
     Active Substance: ACETAMINOPHEN
     Indication: PAIN
     Dates: start: 2013
  5. PROMETHAZINE [Concomitant]
     Active Substance: PROMETHAZINE HYDROCHLORIDE
  6. NORVASC [Concomitant]
     Active Substance: AMLODIPINE BESYLATE
  7. PRIMIDONE. [Concomitant]
     Active Substance: PRIMIDONE
  8. REGLAN [Concomitant]
     Active Substance: METOCLOPRAMIDE HYDROCHLORIDE
  9. BASAGLAR [Concomitant]
     Active Substance: INSULIN GLARGINE
  10. CYCLOBENZAPRINE. [Concomitant]
     Active Substance: CYCLOBENZAPRINE
  11. VANCOMYCIN [Concomitant]
     Active Substance: VANCOMYCIN
  12. LEVODOPA [Concomitant]
     Active Substance: LEVODOPA
  13. ZOSYN [Concomitant]
     Active Substance: PIPERACILLIN SODIUM\TAZOBACTAM SODIUM
  14. BISACODYL. [Concomitant]
     Active Substance: BISACODYL
  15. ACETAMINOPHEN. [Concomitant]
     Active Substance: ACETAMINOPHEN
  16. VITAMIN C [Concomitant]
     Active Substance: ASCORBIC ACID
     Indication: SUPPLEMENTATION THERAPY
     Dates: start: 2014
  17. HUMALOG [Concomitant]
     Active Substance: INSULIN LISPRO
  18. AZATHIOPRINE. [Concomitant]
     Active Substance: AZATHIOPRINE
  19. TESSALON [Concomitant]
     Active Substance: BENZONATATE
  20. ENOXAPARIN [Concomitant]
     Active Substance: ENOXAPARIN
  21. BYDUREON [Concomitant]
     Active Substance: EXENATIDE
  22. SENNOSIDES?DOCUSATE SODIUM [Concomitant]
     Active Substance: DOCUSATE SODIUM\SENNOSIDES
  23. FLORANEX [Concomitant]
     Active Substance: LACTOBACILLUS ACIDOPHILUS\LACTOBACILLUS DELBRUECKII SUBSP. BULGARICUS
  24. PIOGLITAZONE. [Concomitant]
     Active Substance: PIOGLITAZONE
  25. DULAGLUTIDE. [Concomitant]
     Active Substance: DULAGLUTIDE
  26. CYTOXAN [Concomitant]
     Active Substance: CYCLOPHOSPHAMIDE
     Indication: GAMMA INTERFERON THERAPY
     Dates: start: 2013
  27. METOPROLOL TARTRATE. [Concomitant]
     Active Substance: METOPROLOL TARTRATE
  28. CEFUROXIME AXETIL. [Concomitant]
     Active Substance: CEFUROXIME AXETIL
  29. NARCAN [Concomitant]
     Active Substance: NALOXONE HYDROCHLORIDE
  30. NEXIUM [Suspect]
     Active Substance: ESOMEPRAZOLE MAGNESIUM
     Indication: GASTROOESOPHAGEAL REFLUX DISEASE
     Route: 048
     Dates: start: 2012, end: 2016
  31. CRESTOR [Concomitant]
     Active Substance: ROSUVASTATIN CALCIUM
     Indication: CHOLESTEROL ABSORPTION EFFICIENCY DECREASED
     Dates: start: 2013
  32. FERROUS SULFATE. [Concomitant]
     Active Substance: FERROUS SULFATE
     Indication: SUPPLEMENTATION THERAPY
     Dates: start: 2014
  33. FAMOTIDINE. [Concomitant]
     Active Substance: FAMOTIDINE
  34. DILTIAZEM. [Concomitant]
     Active Substance: DILTIAZEM
  35. TAMSULOSIN [Concomitant]
     Active Substance: TAMSULOSIN
  36. CLINDA [Concomitant]
     Active Substance: CLINDAMYCIN HYDROCHLORIDE
  37. HYDROXYZINE [Concomitant]
     Active Substance: HYDROXYZINE HYDROCHLORIDE
  38. NEXIUM [Suspect]
     Active Substance: ESOMEPRAZOLE MAGNESIUM
     Indication: GASTROOESOPHAGEAL REFLUX DISEASE
     Route: 048
     Dates: start: 2001, end: 2008
  39. HCTZ [Concomitant]
     Active Substance: HYDROCHLOROTHIAZIDE
     Indication: BLOOD PRESSURE ABNORMAL
     Dates: start: 2013
  40. CIPROFLOXACIN. [Concomitant]
     Active Substance: CIPROFLOXACIN
     Indication: ANTIBIOTIC THERAPY
     Dates: start: 2011
  41. VITAMIN B [Concomitant]
     Active Substance: VITAMIN B
     Indication: SUPPLEMENTATION THERAPY
     Dates: start: 2017
  42. AMITIZA [Concomitant]
     Active Substance: LUBIPROSTONE
  43. GLIMEPIRIDE. [Concomitant]
     Active Substance: GLIMEPIRIDE
  44. CARBIDOPA. [Concomitant]
     Active Substance: CARBIDOPA
  45. CEFUROXIME. [Concomitant]
     Active Substance: CEFUROXIME
     Indication: ANTIBIOTIC THERAPY
     Dates: start: 2012
  46. ALLOPURINOL. [Concomitant]
     Active Substance: ALLOPURINOL
     Indication: GOUT
     Dates: start: 2014
  47. ASTELIN [Concomitant]
     Active Substance: AZELASTINE HYDROCHLORIDE
  48. AMITRIPTYLINE [Concomitant]
     Active Substance: AMITRIPTYLINE
  49. CIALIS [Concomitant]
     Active Substance: TADALAFIL
  50. SODIUM CHLORIDE. [Concomitant]
     Active Substance: SODIUM CHLORIDE
  51. LISINOPRIL. [Concomitant]
     Active Substance: LISINOPRIL
  52. AZATHIOPRINE. [Concomitant]
     Active Substance: AZATHIOPRINE
     Indication: GRANULOMATOSIS WITH POLYANGIITIS
     Dates: start: 2015
  53. AMOX [Concomitant]
     Active Substance: UNSPECIFIED INGREDIENT
     Indication: ANTIBIOTIC THERAPY
     Dates: start: 2012
  54. AMOX POT CLAV [Concomitant]
     Indication: ANTIBIOTIC THERAPY
     Dates: start: 2014
  55. ESTRADIOL. [Concomitant]
     Active Substance: ESTRADIOL
  56. LANTUS SOLOSTAR [Concomitant]
     Active Substance: INSULIN GLARGINE
  57. ONDANSETRON [Concomitant]
     Active Substance: ONDANSETRON
  58. ALENDRONATE [Concomitant]
     Active Substance: ALENDRONATE SODIUM
  59. POLYETHYLENE GLYCOL [Concomitant]
     Active Substance: POLYETHYLENE GLYCOLS
  60. MAGNESIUM HYDROXIDE. [Concomitant]
     Active Substance: MAGNESIUM HYDROXIDE
  61. ROXICODONE [Concomitant]
     Active Substance: OXYCODONE HYDROCHLORIDE
  62. LOVENOX [Concomitant]
     Active Substance: ENOXAPARIN SODIUM
  63. DEXCOM [Concomitant]
  64. CEPHALEXIN. [Concomitant]
     Active Substance: CEPHALEXIN
     Indication: ANTIBIOTIC THERAPY
     Dates: start: 2010
  65. DIOVAN [Concomitant]
     Active Substance: VALSARTAN
     Indication: BLOOD PRESSURE ABNORMAL
     Dates: start: 2014
  66. LEVAQUIN [Concomitant]
     Active Substance: LEVOFLOXACIN
     Indication: ANTIBIOTIC THERAPY
     Dates: start: 2007
  67. NITROFURNATOIN [Concomitant]
     Indication: ANTIBIOTIC THERAPY
     Dates: start: 2011
  68. FLUOCINOLONE [Concomitant]
     Active Substance: FLUOCINOLONE
  69. JANUVIA [Concomitant]
     Active Substance: SITAGLIPTIN PHOSPHATE
  70. TRAZODONE [Concomitant]
     Active Substance: TRAZODONE HYDROCHLORIDE
  71. DEXTROSE. [Concomitant]
     Active Substance: DEXTROSE

REACTIONS (7)
  - Chronic kidney disease [Not Recovered/Not Resolved]
  - Renal tubular necrosis [Unknown]
  - Renal failure [Not Recovered/Not Resolved]
  - Hyperparathyroidism secondary [Unknown]
  - Acute kidney injury [Not Recovered/Not Resolved]
  - Nephrogenic anaemia [Unknown]
  - End stage renal disease [Not Recovered/Not Resolved]
